FAERS Safety Report 19286110 (Version 1)
Quarter: 2021Q2

REPORT INFORMATION
  Report Type: Spontaneous
  Country: US (occurrence: US)
  Receive Date: 20210521
  Receipt Date: 20210521
  Transmission Date: 20210717
  Serious: Yes (Disabling, Other)
  Sender: FDA-Public Use
  Company Number: US-ASTRAZENECA-2021A438485

PATIENT
  Age: 66 Year
  Sex: Female
  Weight: 108.9 kg

DRUGS (4)
  1. PFIZER?BIONTECH COVID?19 VACCINE [Suspect]
     Active Substance: TOZINAMERAN
     Dosage: SECOND SHOT WAS ON 25?FEB?2021, FIRST DOSE LEFT UPPER ARM, HIGH UP. SECOND DOSE LEFT ARM UP HIGH ...
     Route: 065
     Dates: start: 20210204
  2. SYNTHROID [Concomitant]
     Active Substance: LEVOTHYROXINE SODIUM
     Indication: THYROID CANCER
  3. BREZTRI [Suspect]
     Active Substance: BUDESONIDE\FORMOTEROL\GLYCOPYRRONIUM
     Route: 055
  4. TRELEGY ELLIPTA [Suspect]
     Active Substance: FLUTICASONE FUROATE\UMECLIDINIUM BROMIDE\VILANTEROL TRIFENATATE
     Route: 065

REACTIONS (16)
  - COVID-19 [Unknown]
  - Pyrexia [Unknown]
  - Influenza [Unknown]
  - Alopecia [Unknown]
  - Weight decreased [Unknown]
  - Drug ineffective [Unknown]
  - Dysphonia [Not Recovered/Not Resolved]
  - Tremor [Unknown]
  - Immune system disorder [Unknown]
  - Headache [Recovered/Resolved]
  - Cerebral disorder [Unknown]
  - Dyspnoea [Unknown]
  - Gait disturbance [Recovered/Resolved]
  - Visual impairment [Recovered/Resolved]
  - Hypersomnia [Recovered/Resolved]
  - Cardiac discomfort [Unknown]

NARRATIVE: CASE EVENT DATE: 20210204
